FAERS Safety Report 4332371-9 (Version None)
Quarter: 2004Q2

REPORT INFORMATION
  Report Type: 
  Country: None (occurrence: None)
  Receive Date: 20040401
  Receipt Date: 20040322
  Transmission Date: 20050107
  Serious: Yes (Hospitalization)
  Sender: FDA-Public Use
  Company Number: FR-JNJFOC-20040304780

PATIENT
  Age: 74 Year
  Sex: Female

DRUGS (5)
  1. TRAMADOL HCL [Suspect]
     Dosage: 400 MG, 1 IN 1 DAY, ORAL
     Route: 048
  2. TAXOTERE [Suspect]
     Indication: BREAST CANCER FEMALE
     Dosage: 115 MG, 1 IN 1 DAY, INTRAVENOUS
     Route: 042
     Dates: start: 20040126, end: 20040126
  3. ADRIBLASTINE (DOXORUBICIN HYDROCHLORIDE) [Suspect]
     Indication: BREAST CANCER FEMALE
     Dosage: 78 MG, 1 IN 1 DAY, INTRAVENOUS
     Route: 042
     Dates: start: 20040126, end: 20040126
  4. ZOMETA [Concomitant]
  5. PAROXETINE HCL [Concomitant]

REACTIONS (7)
  - ANAEMIA [None]
  - DEHYDRATION [None]
  - DRUG INTERACTION [None]
  - LEUKOPENIA [None]
  - NAUSEA [None]
  - NEUTROPENIA [None]
  - VOMITING [None]
